FAERS Safety Report 17248006 (Version 3)
Quarter: 2020Q2

REPORT INFORMATION
  Report Type: Spontaneous
  Country: US (occurrence: US)
  Receive Date: 20200108
  Receipt Date: 20200412
  Transmission Date: 20200713
  Serious: No
  Sender: FDA-Public Use
  Company Number: US-SA-2020SA002320

PATIENT
  Age: 59 Year
  Sex: Female

DRUGS (2)
  1. LANTUS [Suspect]
     Active Substance: INSULIN GLARGINE
     Dosage: TAKES LANTUS QHS.
     Route: 065
  2. APIDRA [Suspect]
     Active Substance: INSULIN GLULISINE
     Indication: DIABETES MELLITUS
     Dosage: 17-18 UNITS SLIDING BEFORE MEALS
     Route: 065

REACTIONS (5)
  - Muscle spasms [Unknown]
  - Weight increased [Unknown]
  - Blood glucose increased [Recovered/Resolved]
  - Malaise [Unknown]
  - Intentional product use issue [Unknown]
